FAERS Safety Report 9142522 (Version 1)
Quarter: 2013Q1

REPORT INFORMATION
  Report Type: Spontaneous
  Country: US (occurrence: US)
  Receive Date: 20130306
  Receipt Date: 20130306
  Transmission Date: 20140127
  Serious: No
  Sender: FDA-Public Use
  Company Number: US-BIOGENIDEC-2013BI020791

PATIENT
  Age: 58 Year
  Sex: Female

DRUGS (1)
  1. TYSABRI [Suspect]
     Indication: MULTIPLE SCLEROSIS
     Route: 042

REACTIONS (7)
  - Post-traumatic headache [Not Recovered/Not Resolved]
  - Pain in extremity [Not Recovered/Not Resolved]
  - Concussion [Recovered/Resolved]
  - Hand fracture [Not Recovered/Not Resolved]
  - Patella fracture [Recovered/Resolved]
  - Visual impairment [Recovered/Resolved]
  - Arthralgia [Not Recovered/Not Resolved]
